FAERS Safety Report 6123878-2 (Version None)
Quarter: 2009Q1

REPORT INFORMATION
  Report Type: 
  Country: None (occurrence: None)
  Receive Date: 20090319
  Receipt Date: 20090310
  Transmission Date: 20090719
  Serious: Yes (Hospitalization)
  Sender: FDA-Public Use
  Company Number: US-BIOGENIDEC-2007BI001891

PATIENT
  Age: 33 Year
  Sex: Female

DRUGS (6)
  1. AVONEX [Suspect]
     Indication: MULTIPLE SCLEROSIS
     Route: 030
     Dates: start: 19980101, end: 20040115
  2. AVONEX [Suspect]
     Route: 030
     Dates: start: 20060401, end: 20061001
  3. AVONEX [Suspect]
     Route: 030
     Dates: start: 20061001
  4. SYMMETREL [Concomitant]
     Indication: FATIGUE
  5. NEURONTIN [Concomitant]
     Indication: TREMOR
  6. MIRAPEX [Concomitant]
     Indication: DRUG USE FOR UNKNOWN INDICATION

REACTIONS (20)
  - BLINDNESS UNILATERAL [None]
  - BLOOD GLUCOSE FLUCTUATION [None]
  - DEHYDRATION [None]
  - FATIGUE [None]
  - GRIP STRENGTH DECREASED [None]
  - HEART RATE IRREGULAR [None]
  - HYPERGLYCAEMIA [None]
  - HYPOGLYCAEMIA [None]
  - ILEUS PARALYTIC [None]
  - MENTAL STATUS CHANGES [None]
  - MULTIPLE SCLEROSIS [None]
  - NARCOLEPSY [None]
  - NAUSEA [None]
  - OBESITY [None]
  - OXYGEN SATURATION DECREASED [None]
  - PALLOR [None]
  - PARAESTHESIA [None]
  - TREMOR [None]
  - VOMITING [None]
  - WHITE BLOOD CELL COUNT INCREASED [None]
